FAERS Safety Report 7332922-6 (Version None)
Quarter: 2011Q1

REPORT INFORMATION
  Report Type: 
  Country: None (occurrence: None)
  Receive Date: 20110304
  Receipt Date: 20110221
  Transmission Date: 20110831
  Serious: Yes (Hospitalization)
  Sender: FDA-Public Use
  Company Number: JP-AMGEN-JPNCT2011000847

PATIENT
  Age: 74 Year
  Sex: Male
  Weight: 64 kg

DRUGS (18)
  1. IRINOTECAN HCL [Suspect]
     Indication: COLORECTAL CANCER
     Route: 041
     Dates: start: 20100830, end: 20101003
  2. MUCOSTA [Concomitant]
     Dosage: UNK
     Route: 048
  3. PANITUMUMAB [Suspect]
     Indication: COLORECTAL CANCER
     Dosage: 6 MG/KG, Q2WK
     Route: 041
     Dates: start: 20100830, end: 20100830
  4. FLUOROURACIL [Suspect]
     Indication: COLORECTAL CANCER
     Route: 040
     Dates: start: 20100830
  5. CORTICOSTEROIDS [Concomitant]
     Indication: PROPHYLAXIS
     Dosage: UNK
     Route: 065
  6. ALOXI [Concomitant]
     Dosage: UNK
     Route: 042
  7. RAMELTEON [Concomitant]
     Dosage: UNK
     Route: 048
  8. ASPIRIN [Concomitant]
     Dosage: UNK
     Route: 048
  9. CALCIUM LEVOFOLINATE [Suspect]
     Indication: COLORECTAL CANCER
     Route: 041
     Dates: start: 20100830
  10. IRINOTECAN HCL [Suspect]
     Route: 041
     Dates: start: 20101004
  11. BETAMETHASONE [Concomitant]
     Dosage: UNK
     Route: 048
  12. U-PAN [Concomitant]
     Dosage: UNK
     Route: 048
  13. ARTIST [Concomitant]
     Dosage: UNK
     Route: 048
  14. PANITUMUMAB [Suspect]
     Dosage: 4.8 MG/KG, Q2WK
     Route: 042
     Dates: start: 20101213
  15. FLUOROURACIL [Suspect]
     Route: 041
     Dates: start: 20100830
  16. DEXART [Concomitant]
     Dosage: UNK
     Route: 042
  17. NIKORANMART [Concomitant]
     Dosage: UNK
     Route: 048
  18. PANITUMUMAB [Suspect]
     Dosage: 6 MG/KG, Q2WK
     Route: 042
     Dates: start: 20101004, end: 20101129

REACTIONS (6)
  - STOMATITIS [None]
  - CHEILITIS [None]
  - NEUTROPENIA [None]
  - DERMATITIS ACNEIFORM [None]
  - DERMATITIS [None]
  - HYPOCALCAEMIA [None]
